FAERS Safety Report 8614934-5 (Version None)
Quarter: 2012Q3

REPORT INFORMATION
  Report Type: 
  Country: None (occurrence: None)
  Receive Date: 20120810
  Receipt Date: 20120810
  Transmission Date: 20120928
  Serious: Yes (Hospitalization)
  Sender: FDA-Public Use
  Company Number: None

PATIENT
  Sex: Female

DRUGS (1)
  1. GABAPENTIN [Suspect]
     Dosage: 400MG TWICE A DAY PO
     Route: 048
     Dates: start: 20120611, end: 20120626

REACTIONS (3)
  - DRUG HYPERSENSITIVITY [None]
  - POISONING [None]
  - PRODUCT CONTAMINATION [None]
